FAERS Safety Report 14014141 (Version 2)
Quarter: 2017Q4

REPORT INFORMATION
  Report Type: Spontaneous
  Country: US (occurrence: US)
  Receive Date: 20170927
  Receipt Date: 20171010
  Transmission Date: 20180321
  Serious: Yes (Other)
  Sender: FDA-Public Use
  Company Number: US-AMGEN-USASP2017142652

PATIENT
  Age: 77 Year
  Sex: Female

DRUGS (1)
  1. PROLIA [Suspect]
     Active Substance: DENOSUMAB
     Indication: OSTEOPOROSIS POSTMENOPAUSAL
     Dosage: 60 MG, Q6MO
     Route: 065
     Dates: start: 201508, end: 201608

REACTIONS (7)
  - Tendon rupture [Unknown]
  - Knee deformity [Unknown]
  - Mobility decreased [Unknown]
  - Lower limb fracture [Unknown]
  - Knee arthroplasty [Unknown]
  - Pain [Unknown]
  - Rash [Unknown]

NARRATIVE: CASE EVENT DATE: 2016
